FAERS Safety Report 19327320 (Version 1)
Quarter: 2021Q2

REPORT INFORMATION
  Report Type: Spontaneous
  Country: US (occurrence: US)
  Receive Date: 20210528
  Receipt Date: 20210528
  Transmission Date: 20210717
  Serious: No
  Sender: FDA-Public Use
  Company Number: US-SA-2021SA170996

PATIENT
  Age: 57 Year
  Sex: Female

DRUGS (8)
  1. ESTRADIOL. [Concomitant]
     Active Substance: ESTRADIOL
  2. VITAMIN C [Concomitant]
     Active Substance: ASCORBIC ACID
     Dosage: 1000 MG
  3. MONTELUKAST SODIUM. [Concomitant]
     Active Substance: MONTELUKAST SODIUM
  4. GLUCOSAMINE + CHONDROITIN + MSM [Concomitant]
     Dosage: UNK UNK, QW
  5. BIOTIN [Concomitant]
     Active Substance: BIOTIN
  6. VITAMINS NOS [Concomitant]
     Active Substance: VITAMINS
  7. DUPIXENT [Suspect]
     Active Substance: DUPILUMAB
     Indication: ASTHMA
     Route: 058
     Dates: start: 2019
  8. FISH OIL [Concomitant]
     Active Substance: FISH OIL

REACTIONS (4)
  - Oropharyngeal discomfort [Unknown]
  - Therapeutic response shortened [Unknown]
  - Respiratory tract congestion [Unknown]
  - Product use issue [Unknown]

NARRATIVE: CASE EVENT DATE: 2019
